FAERS Safety Report 12621956 (Version 4)
Quarter: 2016Q3

REPORT INFORMATION
  Report Type: Report from Study
  Country: ES (occurrence: ES)
  Receive Date: 20160804
  Receipt Date: 20160919
  Transmission Date: 20161109
  Serious: Yes (Hospitalization)
  Sender: FDA-Public Use
  Company Number: ES-EISAI MEDICAL RESEARCH-EC-2016-019042

PATIENT
  Age: 54 Year
  Sex: Female

DRUGS (15)
  1. PQR309 [Suspect]
     Active Substance: INVESTIGATIONAL PRODUCT
     Route: 048
     Dates: start: 20160614, end: 20160626
  2. PRIMPERAN [Concomitant]
     Active Substance: METOCLOPRAMIDE HYDROCHLORIDE
  3. PQR309 [Suspect]
     Active Substance: INVESTIGATIONAL PRODUCT
     Route: 048
     Dates: start: 20160704, end: 20160717
  4. LEVOCETIRIZINE [Concomitant]
     Active Substance: LEVOCETIRIZINE
  5. ESCITALOPRAM [Concomitant]
     Active Substance: ESCITALOPRAM OXALATE
  6. PQR309 [Suspect]
     Active Substance: INVESTIGATIONAL PRODUCT
     Indication: TRIPLE NEGATIVE BREAST CANCER
     Route: 048
     Dates: start: 20160510, end: 20160518
  7. ATENOLOL. [Concomitant]
     Active Substance: ATENOLOL
  8. BUSCAPINA [Concomitant]
     Active Substance: BUTYLSCOPOLAMINE BROMIDE
  9. PQR309 [Suspect]
     Active Substance: INVESTIGATIONAL PRODUCT
     Route: 048
     Dates: start: 20160525, end: 20160606
  10. APIRETAL [Concomitant]
  11. ERIBULIN [Suspect]
     Active Substance: ERIBULIN
     Indication: TRIPLE NEGATIVE BREAST CANCER
     Route: 041
     Dates: start: 20160503, end: 20160712
  12. LIDOCAINE. [Concomitant]
     Active Substance: LIDOCAINE
  13. ERIBULIN [Suspect]
     Active Substance: ERIBULIN
     Dosage: ERIBULIN RE-STARTED OFF STUDY AT UNKNOWN DOSE
     Route: 041
     Dates: start: 20160816
  14. MAGNESIA [Concomitant]
     Active Substance: MAGNESIUM HYDROXIDE
  15. MOMETASONE [Concomitant]
     Active Substance: MOMETASONE

REACTIONS (2)
  - Mucosal inflammation [Recovered/Resolved]
  - Febrile neutropenia [Recovered/Resolved]

NARRATIVE: CASE EVENT DATE: 20160718
